FAERS Safety Report 25036142 (Version 1)
Quarter: 2025Q1

REPORT INFORMATION
  Report Type: Spontaneous
  Country: CN (occurrence: CN)
  Receive Date: 20250304
  Receipt Date: 20250304
  Transmission Date: 20250408
  Serious: Yes (Hospitalization, Other)
  Sender: FRESENIUS KABI
  Company Number: CN-FreseniusKabi-FK202503145

PATIENT
  Age: 64 Year
  Sex: Female
  Weight: 71.2 kg

DRUGS (5)
  1. DEXTROSE [Suspect]
     Active Substance: DEXTROSE MONOHYDRATE
     Indication: Gastric cancer
     Dosage: FOA - INJECTION
     Route: 041
     Dates: start: 20250211, end: 20250214
  2. GLYCERIN\MEDIUM-CHAIN TRIGLYCERIDES\PHOSPHOLIPID\SOYBEAN OIL [Suspect]
     Active Substance: GLYCERIN\MEDIUM-CHAIN TRIGLYCERIDES\PHOSPHOLIPID\SOYBEAN OIL
     Indication: Gastric cancer
     Dosage: FOA - INJECTION
     Route: 041
     Dates: start: 20250211, end: 20250214
  3. AMINO ACIDS [Suspect]
     Active Substance: AMINO ACIDS
     Indication: Gastric cancer
     Dosage: FOA - INJECTION
     Route: 041
     Dates: start: 20250211, end: 20250214
  4. SODIUM CHLORIDE [Suspect]
     Active Substance: SODIUM CHLORIDE
     Indication: Gastric cancer
     Dosage: FOA - INJECTION
     Route: 041
     Dates: start: 20250211, end: 20250214
  5. DEXTROSE [Suspect]
     Active Substance: DEXTROSE MONOHYDRATE
     Indication: Gastric cancer
     Dosage: FOA - INJECTION
     Route: 041
     Dates: start: 20250207, end: 20250207

REACTIONS (1)
  - Liver injury [Recovering/Resolving]

NARRATIVE: CASE EVENT DATE: 20250213
